FAERS Safety Report 25011584 (Version 2)
Quarter: 2025Q1

REPORT INFORMATION
  Report Type: Spontaneous
  Country: IN (occurrence: IN)
  Receive Date: 20250226
  Receipt Date: 20250304
  Transmission Date: 20250408
  Serious: Yes (Hospitalization, Other)
  Sender: ROCHE
  Company Number: IN-ROCHE-10000208048

PATIENT
  Age: 19 Year
  Sex: Male

DRUGS (4)
  1. TECENTRIQ [Suspect]
     Active Substance: ATEZOLIZUMAB
     Indication: Portal hypertension
     Route: 042
     Dates: start: 20240911
  2. TECENTRIQ [Suspect]
     Active Substance: ATEZOLIZUMAB
     Indication: Hepatic cirrhosis
  3. AVASTIN [Suspect]
     Active Substance: BEVACIZUMAB
     Indication: Hepatic cirrhosis
     Dosage: MAY-2026 H0327B05
     Route: 042
     Dates: start: 20240911
  4. AVASTIN [Suspect]
     Active Substance: BEVACIZUMAB
     Indication: Portal hypertension
     Route: 042

REACTIONS (11)
  - Off label use [Unknown]
  - Hepatic haemorrhage [Unknown]
  - Hypertension [Unknown]
  - Jaundice [Unknown]
  - Cyanosis [Unknown]
  - Clubbing [Unknown]
  - Oedema peripheral [Unknown]
  - Off label use [Unknown]
  - Jaundice [Unknown]
  - Vomiting [Unknown]
  - Hepatic vein occlusion [Unknown]
